FAERS Safety Report 20812512 (Version 1)
Quarter: 2022Q2

REPORT INFORMATION
  Report Type: Spontaneous
  Country: DE (occurrence: DE)
  Receive Date: 20220511
  Receipt Date: 20220511
  Transmission Date: 20220721
  Serious: Yes (Other)
  Sender: FDA-Public Use
  Company Number: None

PATIENT
  Age: 58 Year
  Sex: Male
  Weight: 69 kg

DRUGS (1)
  1. ROSUVASTATIN [Suspect]
     Active Substance: ROSUVASTATIN
     Indication: Hyperlipidaemia
     Dosage: ROSUVASTATIN 5 MG
     Route: 048
     Dates: start: 20211202, end: 20220328

REACTIONS (3)
  - Haematochezia [Recovered/Resolved]
  - Arthralgia [Recovered/Resolved]
  - Photopsia [Recovered/Resolved]
